FAERS Safety Report 14296596 (Version 1)
Quarter: 2017Q4

REPORT INFORMATION
  Report Type: Spontaneous
  Country: US (occurrence: US)
  Receive Date: 20171215
  Receipt Date: 20171215
  Transmission Date: 20180321
  Serious: Yes (Disabling)
  Sender: FDA-Public Use
  Company Number: None

PATIENT
  Age: 75 Year
  Sex: Female
  Weight: 69.85 kg

DRUGS (12)
  1. SYNTHROID [Concomitant]
     Active Substance: LEVOTHYROXINE SODIUM
  2. COQ10 [Concomitant]
     Active Substance: UBIDECARENONE
  3. VIT. D [Concomitant]
  4. ASA [Concomitant]
     Active Substance: ASPIRIN
  5. CRESTOR [Suspect]
     Active Substance: ROSUVASTATIN CALCIUM
  6. OMEGA 3 [Concomitant]
     Active Substance: OMEGA-3 FATTY ACIDS
  7. NIACIN. [Concomitant]
     Active Substance: NIACIN
  8. MULTI-VIT [Concomitant]
     Active Substance: VITAMINS
  9. TOPROL XL [Concomitant]
     Active Substance: METOPROLOL SUCCINATE
  10. ROBAXIN [Concomitant]
     Active Substance: METHOCARBAMOL
  11. LISINOPRIL. [Concomitant]
     Active Substance: LISINOPRIL
  12. ALEVE [Concomitant]
     Active Substance: NAPROXEN SODIUM

REACTIONS (4)
  - Mobility decreased [None]
  - Muscle spasms [None]
  - Myalgia [None]
  - Musculoskeletal stiffness [None]

NARRATIVE: CASE EVENT DATE: 20171205
